FAERS Safety Report 10286435 (Version 1)
Quarter: 2014Q3

REPORT INFORMATION
  Report Type: Spontaneous
  Country: FR (occurrence: None)
  Receive Date: 20140703
  Receipt Date: 20140703
  Transmission Date: 20150326
  Serious: Yes (Other)
  Sender: FDA-Public Use
  Company Number: AXC-2014-000400

PATIENT
  Age: 48 Year
  Sex: Female

DRUGS (3)
  1. LEVOTHYROX (LEVOTHYROXINE SODIUM) [Concomitant]
     Active Substance: LEVOTHYROXINE SODIUM
  2. PYLERA [Suspect]
     Active Substance: BISMUTH SUBCITRATE POTASSIUM\METRONIDAZOLE\TETRACYCLINE HYDROCHLORIDE
     Indication: HELICOBACTER INFECTION
     Route: 048
     Dates: start: 20140426, end: 20140428
  3. OMEPRAZOLE (OMEPRAZOLE) [Concomitant]
     Active Substance: OMEPRAZOLE

REACTIONS (7)
  - Abdominal pain [None]
  - Vomiting [None]
  - Faeces discoloured [None]
  - Headache [None]
  - Asthenia [None]
  - Pain [None]
  - Back pain [None]

NARRATIVE: CASE EVENT DATE: 20140427
